FAERS Safety Report 9419998 (Version 1)
Quarter: 2013Q3

REPORT INFORMATION
  Report Type: Spontaneous
  Country: US (occurrence: US)
  Receive Date: 20130725
  Receipt Date: 20130725
  Transmission Date: 20140515
  Serious: Yes (Hospitalization)
  Sender: FDA-Public Use
  Company Number: US-GLAXOSMITHKLINE-A0688719A

PATIENT
  Age: 48 Year
  Sex: Male
  Weight: 119.1 kg

DRUGS (7)
  1. AVANDIA [Suspect]
     Indication: TYPE 2 DIABETES MELLITUS
     Dosage: 4MG TWICE PER DAY
     Route: 048
     Dates: start: 200510, end: 20070525
  2. ACTOS [Concomitant]
     Dates: start: 2006, end: 2007
  3. HUMALOG [Concomitant]
     Dates: start: 1997
  4. INSULIN LANTUS [Concomitant]
     Dates: start: 2006
  5. NEURONTIN [Concomitant]
  6. TOPROL XL [Concomitant]
  7. GLUCOPHAGE [Concomitant]
     Dates: end: 20070525

REACTIONS (4)
  - Cardiac failure congestive [Not Recovered/Not Resolved]
  - Heart injury [Unknown]
  - Cardiomyopathy [Unknown]
  - Mitral valve incompetence [Unknown]
